FAERS Safety Report 24302994 (Version 1)
Quarter: 2024Q3

REPORT INFORMATION
  Report Type: Spontaneous
  Country: ES (occurrence: ES)
  Receive Date: 20240910
  Receipt Date: 20240910
  Transmission Date: 20241016
  Serious: Yes (Other)
  Sender: TAKEDA
  Company Number: None

PATIENT
  Age: 68 Year
  Sex: Female

DRUGS (1)
  1. BRINTELLIX [Suspect]
     Active Substance: VORTIOXETINE HYDROBROMIDE
     Indication: Depression
     Dosage: UNK, QD
     Route: 048
     Dates: start: 2016

REACTIONS (2)
  - Burning sensation [Recovering/Resolving]
  - Restless legs syndrome [Recovering/Resolving]

NARRATIVE: CASE EVENT DATE: 20240201
